FAERS Safety Report 5179548-0 (Version None)
Quarter: 2006Q4

REPORT INFORMATION
  Report Type: 
  Country: None (occurrence: None)
  Receive Date: 20061211
  Receipt Date: 20061124
  Transmission Date: 20070319
  Serious: Yes (Hospitalization)
  Sender: FDA-Public Use
  Company Number: FR-2006-023405

PATIENT
  Age: 25 Year
  Sex: Female

DRUGS (6)
  1. BETAFERON [Suspect]
     Indication: MULTIPLE SCLEROSIS
     Dosage: 8 MIU, SUBCUTANEOUS
     Route: 058
     Dates: start: 20051101
  2. DEBRIDAT ^PARKE DAVIS^ (TRIMEBUTINE MALEATE) [Concomitant]
  3. CLONAZEPAM [Concomitant]
  4. AMOXICILLIN [Concomitant]
  5. DI-ANTALVIC (DEXTROPROPOXYPHENE HYDROCHLORIDE) [Concomitant]
  6. PRAZEPAM [Concomitant]

REACTIONS (3)
  - CROHN'S DISEASE [None]
  - ENTERITIS INFECTIOUS [None]
  - HAEMOGLOBIN DECREASED [None]
